FAERS Safety Report 5762701-2 (Version None)
Quarter: 2008Q2

REPORT INFORMATION
  Report Type: 
  Country: None (occurrence: None)
  Receive Date: 20080609
  Receipt Date: 20080530
  Transmission Date: 20081010
  Serious: Yes (Hospitalization)
  Sender: FDA-Public Use
  Company Number: SE-MERCK-0806SWE00003

PATIENT
  Age: 2 Year
  Sex: Male

DRUGS (1)
  1. INVANZ [Suspect]
     Indication: URINARY TRACT INFECTION PSEUDOMONAL
     Route: 065
     Dates: start: 20080520, end: 20080527

REACTIONS (1)
  - EPILEPSY [None]
